FAERS Safety Report 10313416 (Version 1)
Quarter: 2014Q3

REPORT INFORMATION
  Report Type: Not Available
  Country: US (occurrence: US)
  Receive Date: 20140718
  Receipt Date: 20140718
  Transmission Date: 20150326
  Serious: No
  Sender: FDA-Public Use
  Company Number: US-LUPIN PHARMACEUTICALS INC.-E2B_00001982

PATIENT
  Age: 3 Year
  Sex: Male

DRUGS (4)
  1. CEFDINIR FOR ORAL SUSPENSION USP 125 MG/5 ML [Suspect]
     Active Substance: CEFDINIR
     Indication: INFECTION
     Dates: start: 20140410
  2. CETIRIZINE [Concomitant]
     Active Substance: CETIRIZINE HYDROCHLORIDE
     Indication: HYPERSENSITIVITY
     Dosage: HALF TEASPOONFUL ONCE DAILY AS REQUIRED
  3. CEFDINIR FOR ORAL SUSPENSION USP 125 MG/5 ML [Suspect]
     Active Substance: CEFDINIR
     Route: 065
  4. NASONEX [Concomitant]
     Active Substance: MOMETASONE FUROATE
     Indication: HYPERSENSITIVITY
     Dosage: 1 SPRAY PER NOSTRIL. 2 SPRAYS
     Route: 045

REACTIONS (2)
  - Product quality issue [Unknown]
  - No therapeutic response [Recovered/Resolved]
